FAERS Safety Report 9341769 (Version 4)
Quarter: 2017Q1

REPORT INFORMATION
  Report Type: Report from Study
  Country: DE (occurrence: DE)
  Receive Date: 20130611
  Receipt Date: 20170314
  Transmission Date: 20170429
  Serious: Yes (Hospitalization, Other)
  Sender: FDA-Public Use
  Company Number: DE-ROCHE-1233373

PATIENT
  Age: 68 Year
  Sex: Male
  Weight: 67 kg

DRUGS (3)
  1. BEVACIZUMAB [Suspect]
     Active Substance: BEVACIZUMAB
     Indication: BRONCHIAL CARCINOMA
     Dosage: ON 06/JUN/2013, THE PATIENT RECEIVED THE LAST DOSE OF AVASTIN PRIOR TO THE EVENT.
     Route: 042
     Dates: start: 20130515
  2. CISPLATIN. [Concomitant]
     Active Substance: CISPLATIN
  3. ALIMTA [Concomitant]
     Active Substance: PEMETREXED DISODIUM

REACTIONS (6)
  - C-reactive protein increased [Unknown]
  - Cerebrovascular accident [Unknown]
  - Leukocytosis [Unknown]
  - Infection [Unknown]
  - Hemiparesis [Unknown]
  - Essential thrombocythaemia [Not Recovered/Not Resolved]

NARRATIVE: CASE EVENT DATE: 201306
